FAERS Safety Report 17063275 (Version 2)
Quarter: 2020Q1

REPORT INFORMATION
  Report Type: Report from Study
  Country: US (occurrence: US)
  Receive Date: 20191122
  Receipt Date: 20200327
  Transmission Date: 20200409
  Serious: Yes (Other)
  Sender: FDA-Public Use
  Company Number: NVSC2019US044589

PATIENT
  Age: 68 Year
  Sex: Male
  Weight: 68.93 kg

DRUGS (1)
  1. ENTRESTO [Suspect]
     Active Substance: SACUBITRIL\VALSARTAN
     Indication: CARDIAC FAILURE
     Dosage: 1 DF (24 MG OF SACUBITRIL AND 26 MG OF VALSARTAN), BID
     Route: 048
     Dates: start: 20190925

REACTIONS (4)
  - Fear [Unknown]
  - Dyspnoea [Unknown]
  - Renal impairment [Unknown]
  - Urge incontinence [Unknown]

NARRATIVE: CASE EVENT DATE: 20191119
